FAERS Safety Report 9676343 (Version 1)
Quarter: 2013Q4

REPORT INFORMATION
  Report Type: Spontaneous
  Country: US (occurrence: US)
  Receive Date: 20131107
  Receipt Date: 20131107
  Transmission Date: 20140711
  Serious: Yes (Other)
  Sender: FDA-Public Use
  Company Number: US-BAXTER-2013BAX043265

PATIENT
  Sex: Female

DRUGS (7)
  1. GAMMAGARD LIQUID [Suspect]
     Indication: ENCEPHALITIS AUTOIMMUNE
  2. GAMMAGARD LIQUID [Suspect]
     Indication: OFF LABEL USE
  3. CYCLOPHOSPHAMIDE FOR INJECTION, USP [Suspect]
     Indication: ENCEPHALITIS AUTOIMMUNE
  4. RITUXIMAB [Suspect]
     Indication: ENCEPHALITIS AUTOIMMUNE
  5. VITAMIN B-COMPLEX [Suspect]
     Indication: ENCEPHALITIS AUTOIMMUNE
  6. MIDAZOLAM [Concomitant]
     Indication: DYSKINESIA
  7. KETAMINE [Concomitant]
     Indication: DYSKINESIA

REACTIONS (3)
  - Drug ineffective [Not Recovered/Not Resolved]
  - Cystitis haemorrhagic [Unknown]
  - Pulseless electrical activity [Recovered/Resolved]
